FAERS Safety Report 10182113 (Version 2)
Quarter: 2024Q3

REPORT INFORMATION
  Report Type: Spontaneous
  Country: US (occurrence: None)
  Receive Date: 20140520
  Receipt Date: 20240923
  Transmission Date: 20241016
  Serious: Yes (Other)
  Sender: ORION
  Company Number: US-ORION CORPORATION ORION PHARMA-ENT 2014-0065

PATIENT
  Age: 38 Year
  Sex: Male

DRUGS (5)
  1. ENTACAPONE [Suspect]
     Active Substance: ENTACAPONE
     Indication: Parkinson^s disease
     Dosage: 5 TIMES, DAILY
  2. ENTACAPONE [Suspect]
     Active Substance: ENTACAPONE
     Dosage: 1 TABLET AT NIGHT, DOSE REDUCED
  3. CARBIDOPA\LEVODOPA [Suspect]
     Active Substance: CARBIDOPA\LEVODOPA
     Indication: Parkinson^s disease
     Dosage: STRENGTH: 100/25, 2 TABLETS 5 TIMES, DAILY
  4. CARBIDOPA\LEVODOPA [Suspect]
     Active Substance: CARBIDOPA\LEVODOPA
     Dosage: STRENGTH:  100/25
  5. RASAGILINE [Suspect]
     Active Substance: RASAGILINE\RASAGILINE MESYLATE
     Indication: Parkinson^s disease

REACTIONS (3)
  - Drug ineffective [Unknown]
  - Therapeutic response shortened [Recovered/Resolved]
  - Dyskinesia [Recovered/Resolved]
